FAERS Safety Report 6249569-5 (Version None)
Quarter: 2009Q2

REPORT INFORMATION
  Report Type: 
  Country: None (occurrence: None)
  Receive Date: 20090625
  Receipt Date: 20090625
  Transmission Date: 20091009
  Serious: Yes (Other)
  Sender: FDA-Public Use
  Company Number: None

PATIENT
  Age: 35 Year
  Sex: Female
  Weight: 95.2554 kg

DRUGS (2)
  1. DUET DHA STUART NATAL [Suspect]
     Indication: PREGNANCY
     Dosage: PER DAY BUCCAL
     Route: 002
     Dates: start: 20070301, end: 20081001
  2. DUET DHA STUART NATAL [Suspect]
     Indication: PRENATAL CARE
     Dosage: PER DAY BUCCAL
     Route: 002
     Dates: start: 20070301, end: 20081001

REACTIONS (7)
  - ACNE [None]
  - ANDROGENETIC ALOPECIA [None]
  - DRUG EXPOSURE DURING PREGNANCY [None]
  - EXTENSIVE INTERDIALYTIC WEIGHT GAIN [None]
  - INCREASED APPETITE [None]
  - MUSCULOSKELETAL DISORDER [None]
  - WEIGHT INCREASED [None]
